FAERS Safety Report 5446764-X (Version None)
Quarter: 2007Q3

REPORT INFORMATION
  Report Type: 
  Country: None (occurrence: None)
  Receive Date: 20070907
  Receipt Date: 20070829
  Transmission Date: 20080115
  Serious: Yes (Other)
  Sender: FDA-Public Use
  Company Number: US-PFIZER INC-2007071138

PATIENT
  Sex: Male
  Weight: 106.6 kg

DRUGS (9)
  1. LIPITOR [Suspect]
     Indication: BLOOD CHOLESTEROL INCREASED
     Route: 048
     Dates: start: 20000101, end: 20070701
  2. LIPITOR [Suspect]
     Indication: MYOCARDIAL INFARCTION
  3. IMDUR [Concomitant]
  4. OXYCONTIN [Concomitant]
     Route: 048
  5. POTASSIUM CHLORIDE [Concomitant]
     Route: 048
  6. LASIX [Concomitant]
  7. INDERAL [Concomitant]
     Route: 048
  8. VASOTEC [Concomitant]
     Route: 048
  9. OTHER ANTIHYPERTENSIVES [Concomitant]
     Route: 048

REACTIONS (5)
  - BURNING SENSATION [None]
  - FALL [None]
  - MYALGIA [None]
  - MYOCARDIAL INFARCTION [None]
  - WEIGHT INCREASED [None]
